FAERS Safety Report 14308213 (Version 9)
Quarter: 2020Q2

REPORT INFORMATION
  Report Type: Report from Study
  Country: US (occurrence: US)
  Receive Date: 20171220
  Receipt Date: 20200413
  Transmission Date: 20200713
  Serious: Yes (Hospitalization)
  Sender: FDA-Public Use
  Company Number: US-ACTELION-A-NJ2016-141045

PATIENT
  Age: 76 Year
  Sex: Female
  Weight: 53.06 kg

DRUGS (6)
  1. TRACLEER [Suspect]
     Active Substance: BOSENTAN
     Dosage: 125 MG, BID
     Route: 048
  2. TRACLEER [Suspect]
     Active Substance: BOSENTAN
     Indication: PULMONARY ARTERIAL HYPERTENSION
     Dosage: 125 MG, BID
     Route: 048
     Dates: start: 20080228
  3. VELETRI [Suspect]
     Active Substance: EPOPROSTENOL
     Dosage: 79.5 NG/KG, PER MIN
     Route: 042
     Dates: start: 20120119
  4. VELETRI [Suspect]
     Active Substance: EPOPROSTENOL
     Indication: PULMONARY ARTERIAL HYPERTENSION
     Dosage: 77 NG/KG, PER MIN
     Route: 042
     Dates: start: 20120119
  5. ADCIRCA [Concomitant]
     Active Substance: TADALAFIL
  6. ARIXTRA [Concomitant]
     Active Substance: FONDAPARINUX SODIUM

REACTIONS (29)
  - Dyspnoea [Unknown]
  - Muscle strain [Unknown]
  - Eye infection [Unknown]
  - Dyspnoea exertional [Unknown]
  - Flushing [Unknown]
  - Arthralgia [Unknown]
  - Sialoadenitis [Unknown]
  - Catheter management [Recovered/Resolved]
  - Lymphadenopathy [Unknown]
  - Swelling [Unknown]
  - Throat irritation [Unknown]
  - Nervousness [Unknown]
  - Transfusion [Unknown]
  - Erythema [Unknown]
  - Multiple allergies [Unknown]
  - Lacrimation increased [Unknown]
  - Balance disorder [Recovering/Resolving]
  - Pruritus [Unknown]
  - Ocular hyperaemia [Unknown]
  - Fall [Recovering/Resolving]
  - Feeling abnormal [Unknown]
  - Joint injury [Recovering/Resolving]
  - Therapy non-responder [Unknown]
  - Eye swelling [Unknown]
  - Hypersensitivity [Unknown]
  - Sneezing [Unknown]
  - Rhinorrhoea [Unknown]
  - Device leakage [Recovered/Resolved]
  - Asthenia [Unknown]

NARRATIVE: CASE EVENT DATE: 20171109
